FAERS Safety Report 15734707 (Version 2)
Quarter: 2019Q1

REPORT INFORMATION
  Report Type: Spontaneous
  Country: US (occurrence: US)
  Receive Date: 20181218
  Receipt Date: 20190110
  Transmission Date: 20190417
  Serious: No
  Sender: FDA-Public Use
  Company Number: US-GLAXOSMITHKLINE-US2018GSK219310

PATIENT
  Sex: Male

DRUGS (7)
  1. FLOLAN [Suspect]
     Active Substance: EPOPROSTENOL SODIUM
     Dosage: 95.5 DF, CO
     Route: 042
     Dates: start: 19991118
  2. FLOLAN DILUENT PH 12 [Suspect]
     Active Substance: GLYCINE\MANNITOL\SODIUM CHLORIDE
     Indication: PULMONARY ARTERIAL HYPERTENSION
     Dosage: UNK
     Dates: start: 20181105
  3. FLOLAN [Suspect]
     Active Substance: EPOPROSTENOL SODIUM
     Indication: PULMONARY ARTERIAL HYPERTENSION
     Dosage: 95.5 NG/KG/MIN, CO
     Route: 042
     Dates: start: 19991118
  4. FLOLAN DILUENT PH 12 [Suspect]
     Active Substance: GLYCINE\MANNITOL\SODIUM CHLORIDE
     Dosage: UNK, CO
     Route: 042
     Dates: start: 20181105
  5. ADCIRCA [Concomitant]
     Active Substance: TADALAFIL
  6. LETAIRIS [Concomitant]
     Active Substance: AMBRISENTAN
  7. COUMADIN [Concomitant]
     Active Substance: WARFARIN SODIUM

REACTIONS (3)
  - Complication associated with device [Unknown]
  - Device defective [Unknown]
  - Device leakage [Unknown]
